FAERS Safety Report 18189985 (Version 4)
Quarter: 2020Q4

REPORT INFORMATION
  Report Type: Spontaneous
  Country: US (occurrence: US)
  Receive Date: 20200824
  Receipt Date: 20201029
  Transmission Date: 20210113
  Serious: Yes (Other)
  Sender: FDA-Public Use
  Company Number: NVSC2020US231191

PATIENT
  Age: 24 Year
  Sex: Male
  Weight: 72 kg

DRUGS (2)
  1. ADAKVEO [Suspect]
     Active Substance: CRIZANLIZUMAB-TMCA
     Dosage: UNK, QMO (ONCE A MONTH)
     Route: 042
     Dates: start: 20200724
  2. ADAKVEO [Suspect]
     Active Substance: CRIZANLIZUMAB-TMCA
     Indication: SICKLE CELL ANAEMIA WITH CRISIS
     Dosage: 5 MG/KG, QMO (ONCE A MONTH)
     Route: 042
     Dates: start: 20200502

REACTIONS (3)
  - Back pain [Recovered/Resolved]
  - Pain in extremity [Recovered/Resolved]
  - Pain in extremity [Unknown]

NARRATIVE: CASE EVENT DATE: 20200724
